FAERS Safety Report 4801162-4 (Version None)
Quarter: 2005Q4

REPORT INFORMATION
  Report Type: 
  Country: None (occurrence: None)
  Receive Date: 20051011
  Receipt Date: 20051004
  Transmission Date: 20060501
  Serious: Yes (Hospitalization)
  Sender: FDA-Public Use
  Company Number: GBWYE027704OCT05

PATIENT
  Age: 86 Year
  Sex: Male

DRUGS (10)
  1. EFFEXOR [Suspect]
     Dosage: 37.5 MG 1X PER 1 DAY, ORAL
     Route: 048
  2. COMTESS (ENTACAPONE, , 0) [Suspect]
     Dosage: ORAL
     Route: 048
  3. TRIHEXYPHENIDYL HCL [Concomitant]
  4. SENNA (SENNA) [Concomitant]
  5. TEMAZEPAM [Concomitant]
  6. LANSOPRAZOLE [Concomitant]
  7. ASPIRIN [Concomitant]
  8. ACETAMINOPHEN [Concomitant]
  9. HYDROXYZINE [Concomitant]
  10. CO-CARELDOPA (CARBIDOPA/LEVODOPA) [Concomitant]

REACTIONS (4)
  - BRADYCARDIA [None]
  - CYANOSIS [None]
  - MALAISE [None]
  - URINARY RETENTION [None]
